FAERS Safety Report 13844007 (Version 1)
Quarter: 2017Q3

REPORT INFORMATION
  Report Type: Spontaneous
  Country: US (occurrence: US)
  Receive Date: 20170808
  Receipt Date: 20170808
  Transmission Date: 20171127
  Serious: Yes (Life-Threatening, Hospitalization, Other)
  Sender: FDA-Public Use
  Company Number: None

PATIENT
  Age: 72 Year
  Sex: Male
  Weight: 98.6 kg

DRUGS (17)
  1. IRON SUCROSE [Concomitant]
     Active Substance: IRON SUCROSE
  2. FUROSEMIDE. [Concomitant]
     Active Substance: FUROSEMIDE
  3. XARELTO [Suspect]
     Active Substance: RIVAROXABAN
     Indication: THROMBOSIS PROPHYLAXIS
     Route: 048
     Dates: start: 20170728, end: 20170801
  4. AUGMENTIN [Concomitant]
     Active Substance: AMOXICILLIN\CLAVULANATE POTASSIUM
  5. PANTOPRAZOLE [Concomitant]
     Active Substance: PANTOPRAZOLE
  6. XANAX [Concomitant]
     Active Substance: ALPRAZOLAM
  7. TEMAZEPAM. [Concomitant]
     Active Substance: TEMAZEPAM
  8. LIPITOR [Concomitant]
     Active Substance: ATORVASTATIN CALCIUM
  9. METFORMIN [Concomitant]
     Active Substance: METFORMIN HYDROCHLORIDE
  10. MEGAC-E [Concomitant]
  11. POTASSIUM CHLORIDE. [Concomitant]
     Active Substance: POTASSIUM CHLORIDE
  12. DOCUSATE-SENNA [Concomitant]
  13. TAMSULOSIN [Concomitant]
     Active Substance: TAMSULOSIN
  14. LOSARTAN. [Concomitant]
     Active Substance: LOSARTAN
  15. PERCOCET [Concomitant]
     Active Substance: ACETAMINOPHEN\OXYCODONE HYDROCHLORIDE
  16. HUMAN ALBUMIN [Concomitant]
     Active Substance: ALBUMIN HUMAN
  17. INSULIN ASPART [Concomitant]
     Active Substance: INSULIN ASPART

REACTIONS (4)
  - Shock haemorrhagic [None]
  - Haematemesis [None]
  - Epistaxis [None]
  - Upper gastrointestinal haemorrhage [None]

NARRATIVE: CASE EVENT DATE: 20170802
